FAERS Safety Report 9949441 (Version 1)
Quarter: 2014Q1

REPORT INFORMATION
  Report Type: Spontaneous
  Country: US (occurrence: US)
  Receive Date: 20140304
  Receipt Date: 20140304
  Transmission Date: 20141002
  Serious: No
  Sender: FDA-Public Use
  Company Number: US-PFIZER INC-2014062144

PATIENT
  Sex: Male

DRUGS (3)
  1. LYRICA [Suspect]
     Indication: DIABETIC NEUROPATHY
     Dosage: 75 MG, 2X/DAY
  2. LYRICA [Suspect]
     Dosage: 75 MG, 1X/DAY
  3. GABAPENTIN [Concomitant]
     Dosage: UNK

REACTIONS (1)
  - Somnolence [Unknown]
